FAERS Safety Report 18050174 (Version 4)
Quarter: 2020Q3

REPORT INFORMATION
  Report Type: Spontaneous
  Country: RU (occurrence: RU)
  Receive Date: 20200721
  Receipt Date: 20200831
  Transmission Date: 20201103
  Serious: Yes (Other)
  Sender: FDA-Public Use
  Company Number: RU-GILEAD-2020-0484122

PATIENT
  Age: 39 Year
  Sex: Male

DRUGS (4)
  1. NYSTATIN. [Concomitant]
     Active Substance: NYSTATIN
  2. ADVAGRAF [Concomitant]
     Active Substance: TACROLIMUS
     Dosage: UNK
  3. RABEPRAZOLE [Concomitant]
     Active Substance: RABEPRAZOLE
     Dosage: UNK
  4. EPCLUSA [Suspect]
     Active Substance: SOFOSBUVIR\VELPATASVIR
     Indication: HEPATITIS C
     Dosage: UNK
     Route: 065
     Dates: start: 20200620

REACTIONS (6)
  - Cholecystostomy [Unknown]
  - Blood bilirubin increased [Recovered/Resolved]
  - Bile duct stenosis [Unknown]
  - Bile output increased [Not Recovered/Not Resolved]
  - Hepatitis C [Unknown]
  - Transaminases increased [Recovered/Resolved]
